FAERS Safety Report 8082306-0 (Version None)
Quarter: 2012Q1

REPORT INFORMATION
  Report Type: 
  Country: None (occurrence: None)
  Receive Date: 20120127
  Receipt Date: 20110216
  Transmission Date: 20120608
  Serious: No
  Sender: FDA-Public Use
  Company Number: US-ABBOTT-11P-163-0705674-00

PATIENT
  Age: 35 Year
  Sex: Female

DRUGS (2)
  1. HUMIRA [Suspect]
     Indication: PSORIATIC ARTHROPATHY
     Dates: start: 20110209
  2. VIMOVO [Concomitant]
     Indication: PAIN
     Dosage: AS NEEDED

REACTIONS (2)
  - RASH PAPULAR [None]
  - PSORIASIS [None]
